FAERS Safety Report 21471228 (Version 1)
Quarter: 2022Q4

REPORT INFORMATION
  Report Type: Spontaneous
  Country: DE (occurrence: DE)
  Receive Date: 20221018
  Receipt Date: 20221018
  Transmission Date: 20230113
  Serious: Yes (Other)
  Sender: FDA-Public Use
  Company Number: DE-BLUEFISH PHARMACEUTICALS AB-2022BF001455

PATIENT
  Sex: Female

DRUGS (1)
  1. LETROZOLE [Suspect]
     Active Substance: LETROZOLE
     Indication: Product used for unknown indication
     Dosage: UNK
     Route: 065
     Dates: start: 202110

REACTIONS (6)
  - Syncope [Unknown]
  - Iron deficiency [Unknown]
  - Arthralgia [Unknown]
  - Hypertension [Unknown]
  - Heart rate increased [Unknown]
  - Hot flush [Unknown]
